FAERS Safety Report 13476334 (Version 1)
Quarter: 2017Q2

REPORT INFORMATION
  Report Type: Spontaneous
  Country: CN (occurrence: CN)
  Receive Date: 20170425
  Receipt Date: 20170425
  Transmission Date: 20170830
  Serious: Yes (Other)
  Sender: FDA-Public Use
  Company Number: CN-ELI_LILLY_AND_COMPANY-CN201704007440

PATIENT

DRUGS (6)
  1. LEUCOVORIN                         /00566701/ [Suspect]
     Active Substance: LEUCOVORIN
     Indication: METASTATIC GASTRIC CANCER
     Dosage: 200 MG/M2, UNK
     Route: 042
  2. 5-FU                               /00098801/ [Suspect]
     Active Substance: FLUOROURACIL
     Indication: METASTATIC GASTRIC CANCER
     Dosage: 400 MG/M2, UNK
     Route: 040
  3. 5-FU                               /00098801/ [Suspect]
     Active Substance: FLUOROURACIL
     Dosage: 2400 MG/M2, UNK
     Route: 042
  4. ERBITUX [Suspect]
     Active Substance: CETUXIMAB
     Indication: METASTATIC GASTRIC CANCER
     Dosage: 400 MG/M2, SINGLE
     Route: 042
  5. ERBITUX [Suspect]
     Active Substance: CETUXIMAB
     Dosage: 250 MG/M2, WEEKLY (1/W)
     Route: 042
  6. IRINOTECAN [Suspect]
     Active Substance: IRINOTECAN
     Indication: METASTATIC GASTRIC CANCER
     Dosage: 180 MG/M2, UNK
     Route: 042

REACTIONS (1)
  - Thrombocytopenia [Unknown]
